FAERS Safety Report 4271273-3 (Version None)
Quarter: 2004Q1

REPORT INFORMATION
  Report Type: 
  Country: None (occurrence: None)
  Receive Date: 20040114
  Receipt Date: 20040114
  Transmission Date: 20041129
  Serious: No
  Sender: FDA-Public Use
  Company Number: None

PATIENT
  Age: 44 Year
  Sex: Female
  Weight: 52.1637 kg

DRUGS (4)
  1. ACCUTANE [Suspect]
     Indication: ACNE
     Dosage: 40 MG 1 A DAY
     Dates: start: 20020601, end: 20021208
  2. ZOCOR [Concomitant]
  3. CLARITIN [Concomitant]
  4. NASALEX [Concomitant]

REACTIONS (6)
  - ARTHRALGIA [None]
  - BACK PAIN [None]
  - BLOOD CHOLESTEROL INCREASED [None]
  - CALCINOSIS [None]
  - PAIN IN EXTREMITY [None]
  - VISUAL ACUITY REDUCED [None]
